FAERS Safety Report 5194546-9 (Version None)
Quarter: 2006Q4

REPORT INFORMATION
  Report Type: 
  Country: None (occurrence: None)
  Receive Date: 20061221
  Receipt Date: 20061214
  Transmission Date: 20070319
  Serious: Yes (Other)
  Sender: FDA-Public Use
  Company Number: 233911

PATIENT
  Age: 33 Year
  Sex: Female
  Weight: 78 kg

DRUGS (1)
  1. XOLAIR [Suspect]
     Indication: ASTHMA
     Dosage: 150 MG, 1/MONTH, SUBCUTANEOUS
     Route: 058
     Dates: start: 20060909

REACTIONS (5)
  - ANXIETY [None]
  - HEART RATE INCREASED [None]
  - NASOPHARYNGITIS [None]
  - SINUSITIS [None]
  - SYNCOPE VASOVAGAL [None]
